FAERS Safety Report 6637679-X (Version None)
Quarter: 2010Q1

REPORT INFORMATION
  Report Type: 
  Country: None (occurrence: None)
  Receive Date: 20100301
  Receipt Date: 20090129
  Transmission Date: 20100710
  Serious: Yes (Hospitalization, Other)
  Sender: FDA-Public Use
  Company Number: RB-6394-2008

PATIENT
  Sex: Male
  Weight: 3.3113 kg

DRUGS (2)
  1. SUBOXONE [Suspect]
     Indication: DRUG DEPENDENCE
     Dosage: TRANSPLACENTAL
     Route: 064
     Dates: end: 20080201
  2. SUBUTEX [Suspect]
     Indication: DRUG DEPENDENCE
     Dosage: 2 MG TRANSPLACENTAL
     Route: 064
     Dates: start: 20080201, end: 20081107

REACTIONS (1)
  - DRUG WITHDRAWAL SYNDROME NEONATAL [None]
